FAERS Safety Report 6641549-0 (Version None)
Quarter: 2010Q1

REPORT INFORMATION
  Report Type: 
  Country: None (occurrence: None)
  Receive Date: 20100317
  Receipt Date: 20100317
  Transmission Date: 20100710
  Serious: Yes (Other)
  Sender: FDA-Public Use
  Company Number: None

PATIENT
  Age: 53 Year
  Sex: Male
  Weight: 138.5 kg

DRUGS (11)
  1. CEFTRIAXONE [Suspect]
     Indication: MENINGITIS
     Dosage: 2G Q12 IV
     Route: 042
     Dates: start: 20091124, end: 20100112
  2. VANCOMYCIN [Suspect]
     Dosage: 1.25G Q8 IV
     Route: 042
  3. LACTOBACILLUS [Concomitant]
  4. PSYLLIUM [Concomitant]
  5. ZINC [Concomitant]
  6. ESCITALOPRAM [Concomitant]
  7. INSULIN [Concomitant]
  8. GABABENTIN [Concomitant]
  9. METOPROLOL TARTRATE [Concomitant]
  10. LISINOPRIL [Concomitant]
  11. SIMVASTATIN [Concomitant]

REACTIONS (3)
  - MENTAL STATUS CHANGES [None]
  - NEUTROPENIA [None]
  - WHITE BLOOD CELL COUNT DECREASED [None]
